FAERS Safety Report 4636871-3 (Version None)
Quarter: 2005Q2

REPORT INFORMATION
  Report Type: 
  Country: None (occurrence: None)
  Receive Date: 20050413
  Receipt Date: 20050413
  Transmission Date: 20051028
  Serious: Yes (Hospitalization)
  Sender: FDA-Public Use
  Company Number: None

PATIENT
  Sex: Male
  Weight: 90.2658 kg

DRUGS (3)
  1. AVASTIN [Suspect]
     Indication: HEPATIC NEOPLASM MALIGNANT
     Dosage: 5MG/KG   Q21DAYS  INTRAVENOU
     Route: 042
     Dates: start: 20050317, end: 20050407
  2. OXALIPLATIN [Concomitant]
  3. XELODA [Concomitant]

REACTIONS (1)
  - MENTAL STATUS CHANGES [None]
